FAERS Safety Report 7297306-8 (Version None)
Quarter: 2011Q1

REPORT INFORMATION
  Report Type: 
  Country: None (occurrence: None)
  Receive Date: 20110207
  Receipt Date: 20110126
  Transmission Date: 20110831
  Serious: Yes (Hospitalization)
  Sender: FDA-Public Use
  Company Number: 026346

PATIENT
  Sex: Male

DRUGS (1)
  1. CIMZIA [Suspect]
     Indication: CROHN'S DISEASE
     Dosage: (PFS (PRE FILLED SYRINGE) SUBCUTANEOUS)
     Route: 058

REACTIONS (6)
  - PNEUMONIA [None]
  - CROHN'S DISEASE [None]
  - UPPER RESPIRATORY TRACT INFLAMMATION [None]
  - VIRAL INFECTION [None]
  - PHARYNGITIS STREPTOCOCCAL [None]
  - RENAL DISORDER [None]
